FAERS Safety Report 8268566-1 (Version None)
Quarter: 2012Q2

REPORT INFORMATION
  Report Type: 
  Country: None (occurrence: None)
  Receive Date: 20120409
  Receipt Date: 20120329
  Transmission Date: 20120825
  Serious: Yes (Other)
  Sender: FDA-Public Use
  Company Number: US-ASTRAZENECA-2011SE00896

PATIENT
  Age: 57 Year
  Sex: Male

DRUGS (1)
  1. SYMBICORT [Suspect]
     Dosage: 160/4.5 MCG UNK FREQUENCY
     Route: 055

REACTIONS (3)
  - DRUG DOSE OMISSION [None]
  - PNEUMONIA PRIMARY ATYPICAL [None]
  - DYSPNOEA [None]
